FAERS Safety Report 17930097 (Version 1)
Quarter: 2020Q2

REPORT INFORMATION
  Report Type: Spontaneous
  Country: US (occurrence: US)
  Receive Date: 20200623
  Receipt Date: 20200623
  Transmission Date: 20200714
  Serious: No
  Sender: FDA-Public Use
  Company Number: None

PATIENT
  Age: 6 Year
  Sex: Female

DRUGS (9)
  1. FYCOMPA 0.5MG/ML [Concomitant]
  2. FLUTICASONE 50MCG NASAL SPRAY [Concomitant]
  3. BETHKIS [Suspect]
     Active Substance: TOBRAMYCIN
     Indication: INFECTION PROPHYLAXIS
     Route: 055
  4. CYPROHEPTADINE 2MG/5ML [Concomitant]
     Active Substance: CYPROHEPTADINE
  5. ALBUTEROL 0.083% NEBS [Concomitant]
  6. CLOBAZAM 2.5MG/ML [Concomitant]
  7. PREVACID [Concomitant]
     Active Substance: LANSOPRAZOLE
  8. EPIDIOLEX [Concomitant]
     Active Substance: CANNABIDIOL
  9. DOXAZOSIN [Concomitant]
     Active Substance: DOXAZOSIN MESYLATE

REACTIONS (2)
  - Urinary tract infection [None]
  - Upper respiratory tract infection [None]

NARRATIVE: CASE EVENT DATE: 20200620
